FAERS Safety Report 11402630 (Version 1)
Quarter: 2015Q3

REPORT INFORMATION
  Report Type: Spontaneous
  Country: US (occurrence: None)
  Receive Date: 20150812
  Receipt Date: 20150812
  Transmission Date: 20151125
  Serious: No
  Sender: FDA-Public Use
  Company Number: 1505USA002506

PATIENT
  Sex: Female

DRUGS (1)
  1. RAGWITEK [Suspect]
     Active Substance: AMBROSIA ARTEMISIIFOLIA POLLEN
     Indication: SEASONAL ALLERGY
     Dosage: STRENGTH: 12 AMB A 1-U, 12 AMB, ONCE A DAY, SUBLINGUAL?
     Route: 060

REACTIONS (2)
  - Muscle spasms [None]
  - Abdominal pain upper [None]
